FAERS Safety Report 6367467-3 (Version None)
Quarter: 2009Q3

REPORT INFORMATION
  Report Type: 
  Country: None (occurrence: None)
  Receive Date: 20090921
  Receipt Date: 20090917
  Transmission Date: 20100115
  Serious: Yes (Other)
  Sender: FDA-Public Use
  Company Number: B0593753A

PATIENT
  Sex: Female

DRUGS (2)
  1. RELENZA [Suspect]
     Indication: DRUG USE FOR UNKNOWN INDICATION
     Dosage: 15MG PER DAY
     Route: 055
     Dates: start: 20090915
  2. ACETAMINOPHEN [Concomitant]

REACTIONS (4)
  - ABNORMAL BEHAVIOUR [None]
  - DELIRIUM [None]
  - NIGHTMARE [None]
  - OVERDOSE [None]
